FAERS Safety Report 10150732 (Version 3)
Quarter: 2014Q2

REPORT INFORMATION
  Report Type: Report from Study
  Country: PT (occurrence: PT)
  Receive Date: 20140502
  Receipt Date: 20140516
  Transmission Date: 20141212
  Serious: Yes (Other)
  Sender: FDA-Public Use
  Company Number: PT-BAXTER-2014BAX015868

PATIENT
  Age: 41 Year
  Sex: Male

DRUGS (21)
  1. EXTRANEAL 75MG/ML - SACO - 5 UNIDADE(S) - 2000 ML [Suspect]
     Indication: PERITONEAL DIALYSIS
     Route: 033
     Dates: start: 20130820, end: 20140321
  2. EXTRANEAL 75MG/ML - SACO - 5 UNIDADE(S) - 2000 ML [Suspect]
     Indication: CONGESTIVE CARDIOMYOPATHY
     Route: 033
     Dates: start: 20140321
  3. PHYSIONEAL 40 GLUCOSE 1,36% P/V / 13,6 MG/ML [Suspect]
     Indication: PERITONEAL DIALYSIS
     Route: 033
     Dates: start: 201401, end: 20140321
  4. PHYSIONEAL 40 GLUCOSE 1,36% P/V / 13,6 MG/ML [Suspect]
     Indication: CARDIAC FAILURE
  5. PHYSIONEAL 40 GLUCOSE 1,36% P/V / 13,6 MG/ML [Suspect]
     Indication: RENAL FAILURE
  6. PHYSIONEAL 40 GLUCOSE 2,27% P/V / 22,7 MG/ML [Suspect]
     Indication: PERITONEAL DIALYSIS
     Route: 033
     Dates: start: 201401, end: 20140321
  7. PHYSIONEAL 40 GLUCOSE 2,27% P/V / 22,7 MG/ML [Suspect]
     Indication: CARDIAC FAILURE
     Route: 033
     Dates: start: 20140321
  8. PHYSIONEAL 40 GLUCOSE 2,27% P/V / 22,7 MG/ML [Suspect]
     Indication: RENAL FAILURE
  9. NUTRINEAL PD4 [Suspect]
     Indication: PERITONEAL DIALYSIS
     Route: 033
     Dates: start: 201401, end: 20140321
  10. NUTRINEAL PD4 [Suspect]
     Indication: CARDIAC FAILURE
  11. NUTRINEAL PD4 [Suspect]
     Indication: RENAL FAILURE
  12. FOLICIL [Concomitant]
     Indication: PRODUCT USED FOR UNKNOWN INDICATION
  13. PRAVASTATIN [Concomitant]
     Indication: PRODUCT USED FOR UNKNOWN INDICATION
  14. FUROSEMIDE [Concomitant]
     Indication: PRODUCT USED FOR UNKNOWN INDICATION
  15. INSULINA HUMALOG [Concomitant]
     Indication: PRODUCT USED FOR UNKNOWN INDICATION
  16. ALLOPURINOL [Concomitant]
     Indication: PRODUCT USED FOR UNKNOWN INDICATION
  17. FLUOXETINE [Concomitant]
     Indication: PRODUCT USED FOR UNKNOWN INDICATION
  18. DIAZEPAM [Concomitant]
     Indication: PRODUCT USED FOR UNKNOWN INDICATION
  19. DOSULEPIN [Concomitant]
     Indication: PRODUCT USED FOR UNKNOWN INDICATION
  20. PRIMIDONE [Concomitant]
     Indication: PRODUCT USED FOR UNKNOWN INDICATION
  21. DUPHALAC [Concomitant]
     Indication: PRODUCT USED FOR UNKNOWN INDICATION

REACTIONS (8)
  - Renal failure [Unknown]
  - Congestive cardiomyopathy [Unknown]
  - Condition aggravated [Unknown]
  - Peritonitis bacterial [Recovered/Resolved]
  - Staphylococcal infection [Recovering/Resolving]
  - Device related infection [Recovered/Resolved]
  - Catheter site infection [Recovering/Resolving]
  - Infection [Unknown]
